FAERS Safety Report 10366466 (Version 1)
Quarter: 2014Q3

REPORT INFORMATION
  Report Type: Spontaneous
  Country: GB (occurrence: None)
  Receive Date: 20140804
  Receipt Date: 20140804
  Transmission Date: 20150326
  Serious: Yes (Other)
  Sender: FDA-Public Use
  Company Number: 2014COR00043

PATIENT
  Age: 39 Year
  Sex: Female

DRUGS (1)
  1. CITALOPRAM (CITALOPRAM) UNKNOWN [Suspect]
     Active Substance: CITALOPRAM HYDROBROMIDE
     Dosage: 20 MG, UNK, UNKNOWN

REACTIONS (6)
  - Social problem [None]
  - Emotional poverty [None]
  - Imprisonment [None]
  - Alcohol abuse [None]
  - Antisocial behaviour [None]
  - Alcoholism [None]
